FAERS Safety Report 19707962 (Version 2)
Quarter: 2021Q3

REPORT INFORMATION
  Report Type: Spontaneous
  Country: US (occurrence: US)
  Receive Date: 20210817
  Receipt Date: 20210914
  Transmission Date: 20211014
  Serious: No
  Sender: FDA-Public Use
  Company Number: US-SPECGX-T202101225

PATIENT
  Sex: Female
  Weight: 73 kg

DRUGS (29)
  1. LANSOPRAZOLE. [Concomitant]
     Active Substance: LANSOPRAZOLE
     Indication: FOOD INTOLERANCE
     Dosage: UNK
     Route: 065
  2. ALOE VERA [Concomitant]
     Active Substance: ALOE VERA LEAF
     Indication: HOT FLUSH
  3. MARINE CORAL CALCIUM PLUS [Concomitant]
     Indication: OSTEOPENIA
     Dosage: 1000 MILLIGRAM
     Route: 065
  4. VITAMIN D [Concomitant]
     Active Substance: VITAMIN D NOS
     Indication: OBESITY
     Dosage: UNK (25 MCG (1,000 IU) IN MULTI?VITAMIN) (400 IU REQUIRED FOR OSTEOPENIA)
     Route: 065
  5. DICLOFENAC SODIUM. [Concomitant]
     Active Substance: DICLOFENAC SODIUM
     Indication: ARTHRALGIA
     Dosage: UNK (2?4 MG NO MORE THAN 32 MG DAILY)
     Route: 065
  6. VITAMIN C [Concomitant]
     Active Substance: ASCORBIC ACID
     Indication: PRODUCT USED FOR UNKNOWN INDICATION
     Dosage: UNK (120 MG, SUPPLEMENT WITH 1000 MG)
     Route: 065
  7. OXYCODONE/ACETAMINOPHEN [Suspect]
     Active Substance: ACETAMINOPHEN\OXYCODONE HYDROCHLORIDE
     Indication: PRODUCT USED FOR UNKNOWN INDICATION
     Dosage: UNK
     Route: 065
  8. BIOTIN [Concomitant]
     Active Substance: BIOTIN
     Indication: ALOPECIA UNIVERSALIS
     Dosage: UNK (30 MCG IN MULTIVITAMIN+1000 MCG)
     Route: 065
  9. LATANOPROST. [Concomitant]
     Active Substance: LATANOPROST
     Indication: DRY EYE
     Dosage: 2 GTT DROPS, QHS
     Route: 047
  10. CALCIUM [Concomitant]
     Active Substance: CALCIUM
     Indication: PRODUCT USED FOR UNKNOWN INDICATION
     Dosage: 300 MILLIGRAM
     Route: 065
  11. COD LIVER OIL [Concomitant]
     Active Substance: COD LIVER OIL
     Indication: LUNG DISORDER
     Dosage: 830 MILLIGRAM
     Route: 065
  12. COD LIVER OIL [Concomitant]
     Active Substance: COD LIVER OIL
     Indication: CARDIAC DISORDER
  13. IBUPROFEN. [Concomitant]
     Active Substance: IBUPROFEN
     Indication: ARTHRITIS
     Dosage: 800 MILLIGRAM, TID
     Route: 065
  14. CIMETIDINE [Concomitant]
     Active Substance: CIMETIDINE
     Indication: FOOD INTOLERANCE
     Dosage: 800 MILLIGRAM, QD
     Route: 065
  15. MILK THISTLE EXTRACT [Concomitant]
     Active Substance: DIETARY SUPPLEMENT\HERBALS\MILK THISTLE
     Indication: LIVER DISORDER
     Dosage: UNK
     Route: 065
  16. BIOTIN [Concomitant]
     Active Substance: BIOTIN
     Indication: BLINDNESS UNILATERAL
  17. VITAMIN D [Concomitant]
     Active Substance: VITAMIN D NOS
     Indication: OSTEOPENIA
  18. SYSTANE (HYPROMELLOSE 2910 (4000 MPA.S)) [Concomitant]
     Active Substance: HYPROMELLOSE 2910 (4000 MPA.S)
     Indication: DRY EYE
     Dosage: UNK (AS NEEDED)
     Route: 065
  19. TIZANIDINE. [Concomitant]
     Active Substance: TIZANIDINE
     Indication: MUSCLE SPASMS
     Dosage: 2 MILLIGRAM, TID
     Route: 065
  20. VITAMIN A [Concomitant]
     Active Substance: VITAMIN A
     Indication: PRODUCT USED FOR UNKNOWN INDICATION
     Dosage: UNK (1050 MCG)
     Route: 065
  21. CBD OIL [Concomitant]
     Active Substance: CANNABIDIOL\HERBALS
     Indication: ARTHRALGIA
     Dosage: 20 MILLIGRAM, QD
     Route: 065
  22. PAMELOR [Suspect]
     Active Substance: NORTRIPTYLINE HYDROCHLORIDE
     Indication: PRODUCT USED FOR UNKNOWN INDICATION
     Dosage: UNK
     Route: 065
  23. ALOE VERA [Concomitant]
     Active Substance: ALOE VERA LEAF
     Indication: GASTRIC PH DECREASED
     Dosage: 25 MILLIGRAM, QD
     Route: 065
  24. LUTEIN [Concomitant]
     Active Substance: LUTEIN
     Indication: MACULAR DEGENERATION
     Dosage: UNK
     Route: 065
  25. ZEAXANTHIN [Concomitant]
     Active Substance: ZEAXANTHIN
     Indication: MACULAR DEGENERATION
     Dosage: 4 MILLIGRAM, QD
     Route: 065
  26. LOVASTATIN. [Concomitant]
     Active Substance: LOVASTATIN
     Indication: BLOOD CHOLESTEROL INCREASED
     Dosage: 40 MILLIGRAM, QD
     Route: 065
  27. ASPIRIN. [Concomitant]
     Active Substance: ASPIRIN
     Indication: BLOOD CHOLESTEROL INCREASED
     Dosage: 80 MILLIGRAM, QHS
     Route: 065
  28. IBUPROFEN. [Concomitant]
     Active Substance: IBUPROFEN
     Indication: MERALGIA PARAESTHETICA
  29. CBD OIL [Concomitant]
     Active Substance: CANNABIDIOL\HERBALS
     Indication: INFLAMMATION

REACTIONS (7)
  - Feeling hot [Unknown]
  - Insomnia [Unknown]
  - Headache [Unknown]
  - Swelling face [Unknown]
  - Pruritus [Unknown]
  - Dizziness [Unknown]
  - Pain [Unknown]
